FAERS Safety Report 11433261 (Version 1)
Quarter: 2015Q3

REPORT INFORMATION
  Report Type: Spontaneous
  Country: AU (occurrence: AU)
  Receive Date: 20150830
  Receipt Date: 20150830
  Transmission Date: 20151125
  Serious: Yes (Other)
  Sender: FDA-Public Use
  Company Number: AU-ROCHE-1626346

PATIENT

DRUGS (3)
  1. HERCEPTIN [Suspect]
     Active Substance: TRASTUZUMAB
     Indication: PRODUCT USED FOR UNKNOWN INDICATION
     Route: 065
  2. TAXOL [Suspect]
     Active Substance: PACLITAXEL
     Indication: PRODUCT USED FOR UNKNOWN INDICATION
     Route: 065
  3. PERJETA [Suspect]
     Active Substance: PERTUZUMAB
     Indication: PRODUCT USED FOR UNKNOWN INDICATION
     Route: 065

REACTIONS (3)
  - Acute kidney injury [Recovered/Resolved]
  - Diarrhoea [Not Recovered/Not Resolved]
  - Dehydration [Recovered/Resolved]
